FAERS Safety Report 6633088-8 (Version None)
Quarter: 2010Q1

REPORT INFORMATION
  Report Type: 
  Country: None (occurrence: None)
  Receive Date: 20100310
  Receipt Date: 20100222
  Transmission Date: 20100710
  Serious: Yes (Other)
  Sender: FDA-Public Use
  Company Number: AUR-APL-2010-00540

PATIENT
  Sex: Female

DRUGS (3)
  1. PAROXETINE HCL [Suspect]
     Indication: DEPRESSION
  2. LAMOTRIGINE [Concomitant]
  3. VALPROIC ACID [Concomitant]

REACTIONS (19)
  - BIPOLAR II DISORDER [None]
  - BLOOD FOLLICLE STIMULATING HORMONE INCREASED [None]
  - BLOOD LUTEINISING HORMONE INCREASED [None]
  - BLOOD TESTOSTERONE DECREASED [None]
  - DEHYDROEPIANDROSTERONE DECREASED [None]
  - DEPRESSION [None]
  - DRUG WITHDRAWAL SYNDROME [None]
  - DYSTONIA [None]
  - DYSURIA [None]
  - EMOTIONAL DISTRESS [None]
  - FEMALE ORGASMIC DISORDER [None]
  - GENITAL PAIN [None]
  - MICTURITION DISORDER [None]
  - NOCTURIA [None]
  - OESTRADIOL DECREASED [None]
  - PARAESTHESIA OF GENITAL FEMALE [None]
  - PROGESTERONE DECREASED [None]
  - SUICIDAL IDEATION [None]
  - URINARY RETENTION [None]
